FAERS Safety Report 11928211 (Version 7)
Quarter: 2016Q2

REPORT INFORMATION
  Report Type: Report from Study
  Country: US (occurrence: US)
  Receive Date: 20160119
  Receipt Date: 20160617
  Transmission Date: 20160815
  Serious: Yes (Hospitalization, Other)
  Sender: FDA-Public Use
  Company Number: US-BAYER-2015-195565

PATIENT
  Age: 65 Year
  Sex: Female
  Weight: 56.24 kg

DRUGS (12)
  1. ADEMPAS [Suspect]
     Active Substance: RIOCIGUAT
     Indication: PULMONARY HYPERTENSION
     Dosage: 2.5 MG, TID
     Route: 048
  2. ADEMPAS [Suspect]
     Active Substance: RIOCIGUAT
     Indication: PULMONARY HYPERTENSION
     Dosage: 2.5 MG, TID
     Route: 048
  3. ALLEGRA [Concomitant]
     Active Substance: FEXOFENADINE HYDROCHLORIDE
     Indication: SEASONAL ALLERGY
  4. ADEMPAS [Suspect]
     Active Substance: RIOCIGUAT
     Indication: PULMONARY HYPERTENSION
     Dosage: UNK
     Dates: start: 20150422
  5. ADEMPAS [Suspect]
     Active Substance: RIOCIGUAT
     Indication: PULMONARY HYPERTENSION
     Dosage: 2.5 MG, TID (LAST SHIPPED 17-SEP-2015)
     Route: 048
  6. ADEMPAS [Suspect]
     Active Substance: RIOCIGUAT
     Indication: PULMONARY HYPERTENSION
     Dosage: 2.5 MG, TID
     Route: 048
  7. APIXABAN [Concomitant]
     Active Substance: APIXABAN
  8. ADEMPAS [Suspect]
     Active Substance: RIOCIGUAT
     Indication: PULMONARY HYPERTENSION
     Dosage: 1 MG, TID
     Route: 048
     Dates: start: 20150423
  9. ADEMPAS [Suspect]
     Active Substance: RIOCIGUAT
     Indication: PULMONARY HYPERTENSION
     Dosage: 1.5 MG, TID
     Route: 048
  10. OPSUMIT [Concomitant]
     Active Substance: MACITENTAN
  11. ADEMPAS [Suspect]
     Active Substance: RIOCIGUAT
     Indication: PULMONARY HYPERTENSION
     Dosage: 2.5 MG, TID
     Route: 048
  12. ADEMPAS [Suspect]
     Active Substance: RIOCIGUAT
     Indication: PULMONARY HYPERTENSION
     Dosage: 2.5 MG, TID
     Route: 048

REACTIONS (48)
  - Intestinal obstruction [Unknown]
  - Nausea [None]
  - Paraesthesia [Unknown]
  - Weight decreased [Unknown]
  - Throat tightness [None]
  - Syncope [Unknown]
  - Oedema peripheral [Unknown]
  - Arthralgia [Unknown]
  - Neuropathy peripheral [Unknown]
  - Chest pain [None]
  - Hypersensitivity [None]
  - Nasal congestion [None]
  - Fall [Unknown]
  - Abdominal adhesions [Unknown]
  - Dyspnoea exertional [None]
  - Food poisoning [Unknown]
  - Vein disorder [Unknown]
  - Sleep study [Unknown]
  - Dizziness [None]
  - Face injury [Unknown]
  - Eye contusion [Unknown]
  - Sputum discoloured [Unknown]
  - Seasonal allergy [Unknown]
  - Pain in extremity [Unknown]
  - Limb discomfort [Unknown]
  - Panic reaction [None]
  - Chest discomfort [None]
  - Upper-airway cough syndrome [Unknown]
  - Anxiety [None]
  - Gastrointestinal motility disorder [Unknown]
  - Ascites [Unknown]
  - Pyrexia [None]
  - Constipation [Unknown]
  - Hypoaesthesia [Unknown]
  - Joint swelling [Unknown]
  - Epistaxis [Unknown]
  - Dizziness [Unknown]
  - Paraesthesia [None]
  - Peripheral swelling [Unknown]
  - Hypertension [None]
  - Oropharyngeal pain [Unknown]
  - Dizziness [Unknown]
  - Dyspnoea [None]
  - Weight decreased [None]
  - Rhinorrhoea [None]
  - Volvulus [Unknown]
  - Productive cough [Unknown]
  - Diarrhoea [None]

NARRATIVE: CASE EVENT DATE: 201504
